FAERS Safety Report 4615057-2 (Version None)
Quarter: 2005Q1

REPORT INFORMATION
  Report Type: 
  Country: None (occurrence: None)
  Receive Date: 20050315
  Receipt Date: 20050308
  Transmission Date: 20050727
  Serious: Yes (Hospitalization)
  Sender: FDA-Public Use
  Company Number: ZONI002126

PATIENT
  Age: 76 Year
  Sex: Male

DRUGS (4)
  1. EXCEGRAN (ZONISAMIDE) [Suspect]
     Indication: EPILEPSY
     Dosage: 200 MG, 1 IN 1 D, ORAL
     Route: 048
     Dates: start: 20050207, end: 20050219
  2. ZITHROMAX [Suspect]
     Dosage: 500 MG, 1 IN 1 D, ORAL
     Route: 048
     Dates: start: 20050217, end: 20050219
  3. RISUMIC (AMEZINIUM METILSULFATE) [Concomitant]
  4. CEREKINON (TRIMEBUTINE MALEATE) [Concomitant]

REACTIONS (1)
  - STEVENS-JOHNSON SYNDROME [None]
